FAERS Safety Report 22607010 (Version 2)
Quarter: 2025Q4

REPORT INFORMATION
  Report Type: Spontaneous
  Country: CH (occurrence: CH)
  Receive Date: 20230615
  Receipt Date: 20251030
  Transmission Date: 20260118
  Serious: Yes (Death, Other)
  Sender: GILEAD
  Company Number: CH-GILEAD-2023-0632350

PATIENT
  Sex: Female

DRUGS (1)
  1. AXICABTAGENE CILOLEUCEL [Suspect]
     Active Substance: AXICABTAGENE CILOLEUCEL
     Indication: Primary mediastinal large B-cell lymphoma
     Route: 065

REACTIONS (1)
  - Immune effector cell-associated neurotoxicity syndrome [Fatal]
